FAERS Safety Report 13985868 (Version 1)
Quarter: 2017Q3

REPORT INFORMATION
  Report Type: Spontaneous
  Country: US (occurrence: None)
  Receive Date: 20170919
  Receipt Date: 20170919
  Transmission Date: 20171128
  Serious: No
  Sender: FDA-Public Use
  Company Number: None

PATIENT
  Age: 49 Year
  Sex: Female

DRUGS (1)
  1. HUMIRA [Suspect]
     Active Substance: ADALIMUMAB
     Indication: RHEUMATOID ARTHRITIS
     Route: 058
     Dates: start: 20170828, end: 20170828

REACTIONS (4)
  - Neck pain [None]
  - Therapy cessation [None]
  - Back pain [None]
  - Clostridium difficile infection [None]

NARRATIVE: CASE EVENT DATE: 20170829
